FAERS Safety Report 20044622 (Version 1)
Quarter: 2021Q4

REPORT INFORMATION
  Report Type: Spontaneous
  Country: CA (occurrence: CA)
  Receive Date: 20211108
  Receipt Date: 20211108
  Transmission Date: 20220303
  Serious: Yes (Life-Threatening)
  Sender: FDA-Public Use
  Company Number: CA-PFIZER INC-202101483232

PATIENT
  Age: 4 Month
  Sex: Female
  Weight: 4 kg

DRUGS (20)
  1. SPIRONOLACTONE [Suspect]
     Active Substance: SPIRONOLACTONE
     Indication: Cardiac failure
     Dosage: 6 MG, 2X/DAY
     Route: 048
  2. ASPIRIN [Concomitant]
     Active Substance: ASPIRIN
  3. CEFAZOLIN [Concomitant]
     Active Substance: CEFAZOLIN
  4. CHOLECALCIFEROL [Concomitant]
     Active Substance: CHOLECALCIFEROL
  5. CISAPRIDE [Concomitant]
     Active Substance: CISAPRIDE
  6. DEXMEDETOMIDINE [Concomitant]
     Active Substance: DEXMEDETOMIDINE
  7. DIGOXIN [Concomitant]
     Active Substance: DIGOXIN
  8. DOMPERIDONE [Concomitant]
     Active Substance: DOMPERIDONE
  9. DIPHTHERIA AND TETANUS TOXOIDS AND ACELLULAR PERTUSSIS ADSORBED, INACT [Concomitant]
     Active Substance: DIPHTHERIA AND TETANUS TOXOIDS AND ACELLULAR PERTUSSIS ADSORBED, INACTIVATED POLIOVIRUS AND HAEMOPHI
  10. EPINEPHRINE [Concomitant]
     Active Substance: EPINEPHRINE
  11. FUROSEMIDE [Concomitant]
     Active Substance: FUROSEMIDE
  12. LANSOPRAZOLE [Concomitant]
     Active Substance: LANSOPRAZOLE
  13. METOCLOPRAMIDE [Concomitant]
     Active Substance: METOCLOPRAMIDE
  14. MILRINONE [Concomitant]
     Active Substance: MILRINONE
  15. MORPHINE [Concomitant]
     Active Substance: MORPHINE
  16. ONDANSETRON [Concomitant]
     Active Substance: ONDANSETRON
  17. PHYTONADIONE [Concomitant]
     Active Substance: PHYTONADIONE
  18. PREVNAR 13 [Concomitant]
     Active Substance: PNEUMOCOCCAL 13-VALENT CONJUGATE VACCINE
  19. RANITIDINE [Concomitant]
     Active Substance: RANITIDINE
  20. ROTARIX [Concomitant]
     Active Substance: HUMAN ROTAVIRUS A TYPE G1P(8) STRAIN RIX4414 LIVE ANTIGEN

REACTIONS (1)
  - Hypokalaemia [Recovered/Resolved]
